FAERS Safety Report 8966520 (Version 3)
Quarter: 2013Q1

REPORT INFORMATION
  Report Type: Spontaneous
  Country: DK (occurrence: DK)
  Receive Date: 20121217
  Receipt Date: 20130218
  Transmission Date: 20140127
  Serious: Yes (Other)
  Sender: FDA-Public Use
  Company Number: DK-AMGEN-DNKSP2012080622

PATIENT
  Age: 49 Year
  Sex: Female
  Weight: 80 kg

DRUGS (2)
  1. ENBREL [Suspect]
     Indication: PSORIASIS
     Dosage: 50 MG, 2X/WEEK
     Route: 058
     Dates: start: 20070103, end: 20080704
  2. RAPTIVA [Suspect]
     Indication: PSORIASIS
     Dosage: 0.7 MG, WEEKLY
     Route: 058
     Dates: start: 20060201, end: 20070103

REACTIONS (11)
  - Pulmonary function test decreased [Not Recovered/Not Resolved]
  - Muscle spasms [Not Recovered/Not Resolved]
  - Memory impairment [Not Recovered/Not Resolved]
  - Balance disorder [Not Recovered/Not Resolved]
  - Visual impairment [Not Recovered/Not Resolved]
  - Hodgkin^s disease [Recovered/Resolved]
  - Sensory disturbance [Unknown]
  - Papilloedema [Unknown]
  - Optic neuritis [Recovered/Resolved]
  - Paraesthesia [Recovered/Resolved]
  - Drug ineffective [Recovered/Resolved]
